FAERS Safety Report 6958483-9 (Version None)
Quarter: 2010Q3

REPORT INFORMATION
  Report Type: 
  Country: None (occurrence: None)
  Receive Date: 20100831
  Receipt Date: 20100823
  Transmission Date: 20110219
  Serious: Yes (Death)
  Sender: FDA-Public Use
  Company Number: GXKR2010US09428

PATIENT
  Age: 69 Year
  Sex: Female

DRUGS (6)
  1. OXYCODONE HCL [Interacting]
     Route: 065
  2. DIPHENHYDRAMINE (NGX) [Suspect]
     Route: 065
  3. BUPROPION (NGX) [Interacting]
     Route: 065
  4. CYMBALTA [Interacting]
     Route: 065
  5. OXYCODONE AND ACETAMINOPHEN [Interacting]
     Route: 065
  6. SEROQUEL [Interacting]
     Route: 065

REACTIONS (1)
  - DRUG TOXICITY [None]
